FAERS Safety Report 8545828-1 (Version None)
Quarter: 2012Q3

REPORT INFORMATION
  Report Type: 
  Country: None (occurrence: None)
  Receive Date: 20120727
  Receipt Date: 20111109
  Transmission Date: 20120928
  Serious: No
  Sender: FDA-Public Use
  Company Number: US-ASTRAZENECA-2011SE68508

PATIENT
  Age: 59 Year
  Sex: Female

DRUGS (3)
  1. SLUBOXA [Concomitant]
  2. SEROQUEL XR [Suspect]
     Indication: BIPOLAR I DISORDER
     Route: 048
  3. NORCORITYLIN [Concomitant]

REACTIONS (4)
  - INSOMNIA [None]
  - HYPERSOMNIA [None]
  - DRUG DOSE OMISSION [None]
  - ACTIVITIES OF DAILY LIVING IMPAIRED [None]
